FAERS Safety Report 12325945 (Version 1)
Quarter: 2016Q2

REPORT INFORMATION
  Report Type: Spontaneous
  Country: US (occurrence: US)
  Receive Date: 20160503
  Receipt Date: 20160503
  Transmission Date: 20160815
  Serious: Yes (Disabling, Other)
  Sender: FDA-Public Use
  Company Number: US-009507513-1604USA013959

PATIENT
  Age: 72 Year
  Sex: Female
  Weight: 50.79 kg

DRUGS (20)
  1. BELSOMRA [Suspect]
     Active Substance: SUVOREXANT
     Indication: THYROID CANCER STAGE IV
  2. CLARITIN-D 24 HOUR [Concomitant]
     Active Substance: LORATADINE\PSEUDOEPHEDRINE SULFATE
     Dosage: 1 DF, QD
  3. VITAMIN D [Concomitant]
     Active Substance: CHOLECALCIFEROL
     Dosage: 2 DF, QD
  4. SPIRIVA [Concomitant]
     Active Substance: TIOTROPIUM BROMIDE MONOHYDRATE
     Dosage: 1 DF, QPM
     Route: 055
  5. BELSOMRA [Suspect]
     Active Substance: SUVOREXANT
     Indication: THYROID CANCER STAGE IV
  6. CYANOCOBALAMIN. [Concomitant]
     Active Substance: CYANOCOBALAMIN
     Dosage: 1 DF, QD
  7. CALCIUM CITRATE (+) CHOLECALCIFEROL [Concomitant]
     Dosage: 4 DF, QD
  8. BENEFIBER [Concomitant]
     Active Substance: STARCH, WHEAT
     Dosage: 1 DF, QPM
  9. SYNTHROID [Concomitant]
     Active Substance: LEVOTHYROXINE SODIUM
     Dosage: 0.5 DF, EVERY OTHER SUNDAY
  10. BELSOMRA [Suspect]
     Active Substance: SUVOREXANT
     Indication: HYPERTHYROIDISM
  11. SINGULAIR [Concomitant]
     Active Substance: MONTELUKAST SODIUM
     Dosage: 1 DF, QPM
  12. SYNTHROID [Concomitant]
     Active Substance: LEVOTHYROXINE SODIUM
     Dosage: 1 DF, QAM
  13. BELSOMRA [Suspect]
     Active Substance: SUVOREXANT
     Indication: INSOMNIA
     Dosage: 15 MG, HS
     Route: 048
     Dates: start: 20160210, end: 20160211
  14. OMNARIS [Concomitant]
     Active Substance: CICLESONIDE
     Dosage: 1 DF, QD
  15. MIRALAX [Concomitant]
     Active Substance: POLYETHYLENE GLYCOL 3350
     Dosage: 1 DF, QPM, 2 CAPFULLS
  16. BELSOMRA [Suspect]
     Active Substance: SUVOREXANT
     Indication: INSOMNIA
     Dosage: 10 MG, HS
     Route: 048
     Dates: start: 20160210, end: 20160211
  17. BELSOMRA [Suspect]
     Active Substance: SUVOREXANT
     Indication: HYPERTHYROIDISM
  18. ALOE VERA [Concomitant]
     Active Substance: ALOE VERA LEAF
     Dosage: 1 DF, QD, STRENGTH 2 OZ
  19. LUNESTA [Concomitant]
     Active Substance: ESZOPICLONE
     Dosage: 1 DF, QPM
  20. MAGNESIUM (UNSPECIFIED) [Concomitant]
     Active Substance: MAGNESIUM
     Dosage: 2 DF, QD

REACTIONS (15)
  - Eating disorder [Not Recovered/Not Resolved]
  - Dizziness [Not Recovered/Not Resolved]
  - Headache [Not Recovered/Not Resolved]
  - Product use issue [Unknown]
  - Activities of daily living impaired [Not Recovered/Not Resolved]
  - Dysphagia [Not Recovered/Not Resolved]
  - Dizziness [Unknown]
  - Speech disorder [Not Recovered/Not Resolved]
  - Dyspnoea [Not Recovered/Not Resolved]
  - Headache [Unknown]
  - Throat tightness [Not Recovered/Not Resolved]
  - Feeling abnormal [Not Recovered/Not Resolved]
  - Dry throat [Not Recovered/Not Resolved]
  - Hypersensitivity [Not Recovered/Not Resolved]
  - Drug ineffective [Not Recovered/Not Resolved]

NARRATIVE: CASE EVENT DATE: 201602
